FAERS Safety Report 13339714 (Version 9)
Quarter: 2019Q2

REPORT INFORMATION
  Report Type: Spontaneous
  Country: US (occurrence: US)
  Receive Date: 20170315
  Receipt Date: 20190515
  Transmission Date: 20190711
  Serious: Yes (Other)
  Sender: FDA-Public Use
  Company Number: US-BIOMARINAP-US-2017-113104

PATIENT
  Age: 17 Year
  Sex: Female
  Weight: 43.99 kg

DRUGS (2)
  1. ALDURAZYME [Suspect]
     Active Substance: LARONIDASE
     Indication: MUCOPOLYSACCHARIDOSIS
     Dosage: 0.52 MILLIGRAM/KILOGRAM, QW
     Route: 041
     Dates: start: 20161013
  2. BENADRYL [Concomitant]
     Active Substance: DIPHENHYDRAMINE HYDROCHLORIDE
     Indication: PREMEDICATION
     Dosage: 50 MG, UNK

REACTIONS (6)
  - Weight increased [Unknown]
  - Pyrexia [Unknown]
  - Chills [Unknown]
  - Exposure via breast milk [Unknown]
  - Spinal fusion surgery [Unknown]
  - Weight decreased [Unknown]

NARRATIVE: CASE EVENT DATE: 20171023
